FAERS Safety Report 8540351-2 (Version None)
Quarter: 2012Q3

REPORT INFORMATION
  Report Type: 
  Country: None (occurrence: None)
  Receive Date: 20120726
  Receipt Date: 20120717
  Transmission Date: 20120928
  Serious: Yes (Other)
  Sender: FDA-Public Use
  Company Number: US-ROCHE-1056082

PATIENT
  Sex: Male
  Weight: 75.818 kg

DRUGS (1)
  1. ACCUTANE [Suspect]
     Indication: ACNE
     Route: 048
     Dates: start: 19920101, end: 19930301

REACTIONS (11)
  - COLITIS ULCERATIVE [None]
  - DEPRESSION [None]
  - SUICIDAL IDEATION [None]
  - SUICIDE ATTEMPT [None]
  - DERMATITIS [None]
  - CROHN'S DISEASE [None]
  - ARTHRITIS [None]
  - INFLAMMATORY BOWEL DISEASE [None]
  - ANAL FISSURE [None]
  - IRRITABLE BOWEL SYNDROME [None]
  - PSEUDOPOLYP [None]
